FAERS Safety Report 8790825 (Version 1)
Quarter: 2012Q4

REPORT INFORMATION
  Report Type: Spontaneous
  Country: BR (occurrence: None)
  Receive Date: 20120907
  Receipt Date: 20120907
  Transmission Date: 20130627
  Serious: Yes (Other)
  Sender: FDA-Public Use
  Company Number: DSJ-2012-15705

PATIENT
  Age: 7 Decade
  Sex: Male

DRUGS (1)
  1. BENICAR [Suspect]
     Indication: HYPERTENSION
     Dosage: 20 mg, 1 in 1 D
     Route: 048
     Dates: start: 2010, end: 201207

REACTIONS (2)
  - Drug ineffective [None]
  - Inguinal hernia [None]
